FAERS Safety Report 18804042 (Version 2)
Quarter: 2022Q1

REPORT INFORMATION
  Report Type: Spontaneous
  Country: US (occurrence: US)
  Receive Date: 20210129
  Receipt Date: 20220224
  Transmission Date: 20220423
  Serious: No
  Sender: FDA-Public Use
  Company Number: US-UCBSA-2020019284

PATIENT
  Age: 68 Year
  Sex: Female

DRUGS (8)
  1. KEPPRA [Suspect]
     Active Substance: LEVETIRACETAM
     Indication: Posterior reversible encephalopathy syndrome
     Dosage: UNK
  2. KEPPRA [Suspect]
     Active Substance: LEVETIRACETAM
     Indication: Off label use
  3. CISPLATIN [Concomitant]
     Active Substance: CISPLATIN
     Indication: Ovarian germ cell tumour
     Dosage: UNK
  4. IFOSFAMIDE [Concomitant]
     Active Substance: IFOSFAMIDE
     Indication: Ovarian germ cell tumour
     Dosage: UNK
  5. PACLITAXEL [Concomitant]
     Active Substance: PACLITAXEL
     Indication: Ovarian germ cell tumour
     Dosage: UNK
  6. METHYLENE BLUE [Concomitant]
     Active Substance: METHYLENE BLUE
     Indication: Neurotoxicity
     Dosage: UNK
  7. THIAMINE [Concomitant]
     Active Substance: THIAMINE
     Indication: Neurotoxicity
     Dosage: UNK
  8. LABETALOL [Concomitant]
     Active Substance: LABETALOL\LABETALOL HYDROCHLORIDE
     Indication: Posterior reversible encephalopathy syndrome
     Dosage: UNK

REACTIONS (1)
  - No adverse event [Unknown]
